FAERS Safety Report 6499184-3 (Version None)
Quarter: 2009Q4

REPORT INFORMATION
  Report Type: 
  Country: None (occurrence: None)
  Receive Date: 20091215
  Receipt Date: 20091208
  Transmission Date: 20100525
  Serious: Yes (Life-Threatening, Hospitalization, Other)
  Sender: FDA-Public Use
  Company Number: ZA-SANOFI-AVENTIS-2009SA007438

PATIENT
  Age: 60 Year
  Sex: Female

DRUGS (6)
  1. TAXOTERE [Suspect]
     Indication: BREAST CANCER
     Route: 041
     Dates: start: 20090930, end: 20090930
  2. TAXOTERE [Suspect]
     Route: 041
     Dates: start: 20090809, end: 20090809
  3. BETANOID [Concomitant]
     Indication: PREMEDICATION
     Route: 048
     Dates: start: 20090927, end: 20090930
  4. DEXAMETHASONE TAB [Concomitant]
     Indication: PREMEDICATION
     Route: 042
     Dates: start: 20090930, end: 20090930
  5. PALONOSETRON [Concomitant]
     Indication: PREMEDICATION
     Route: 042
     Dates: start: 20090930, end: 20090930
  6. TAGAMET [Concomitant]
     Indication: PREMEDICATION
     Route: 042
     Dates: start: 20090930, end: 20090930

REACTIONS (1)
  - NEUTROPENIA [None]
